APPROVED DRUG PRODUCT: EVEKEO ODT
Active Ingredient: AMPHETAMINE SULFATE
Strength: 10MG
Dosage Form/Route: TABLET, ORALLY DISINTEGRATING;ORAL
Application: N209905 | Product #002
Applicant: AZURITY PHARMACEUTICALS INC
Approved: Jan 30, 2019 | RLD: Yes | RS: No | Type: DISCN

PATENTS:
Patent 11896562 | Expires: Mar 10, 2037
Patent 11160772 | Expires: Mar 10, 2037
Patent 10441554 | Expires: Mar 10, 2037